FAERS Safety Report 21231822 (Version 1)
Quarter: 2022Q3

REPORT INFORMATION
  Report Type: Spontaneous
  Country: DE (occurrence: DE)
  Receive Date: 20220819
  Receipt Date: 20220819
  Transmission Date: 20221027
  Serious: Yes (Other)
  Sender: FDA-Public Use
  Company Number: None

PATIENT
  Age: 63 Year
  Sex: Female
  Weight: 72 kg

DRUGS (5)
  1. IBUPROFEN [Suspect]
     Active Substance: IBUPROFEN
     Indication: Product used for unknown indication
     Route: 065
  2. AMBROXOL HYDROCHLORIDE [Suspect]
     Active Substance: AMBROXOL HYDROCHLORIDE
     Indication: Product used for unknown indication
     Route: 065
  3. BENZOCAINE [Suspect]
     Active Substance: BENZOCAINE
     Indication: Influenza like illness
  4. PROPOLIS WAX [Suspect]
     Active Substance: PROPOLIS WAX
     Indication: Product used for unknown indication
     Dosage: (NUTRITIONAL SUPPLEMENTS)
     Route: 065
  5. HERBALS [Suspect]
     Active Substance: HERBALS
     Indication: Product used for unknown indication
     Route: 065

REACTIONS (2)
  - Choking [Unknown]
  - Panic attack [Unknown]

NARRATIVE: CASE EVENT DATE: 20180210
